FAERS Safety Report 6147042-6 (Version None)
Quarter: 2009Q2

REPORT INFORMATION
  Report Type: 
  Country: None (occurrence: None)
  Receive Date: 20090403
  Receipt Date: 20090325
  Transmission Date: 20091009
  Serious: No
  Sender: FDA-Public Use
  Company Number: 2009SP001821

PATIENT
  Age: 10 Year
  Sex: Male
  Weight: 34.4 kg

DRUGS (4)
  1. DESLORATADINE [Suspect]
     Indication: ASTHMA
     Dosage: 2.5 MG;QD;PO
     Route: 048
     Dates: start: 20090125
  2. SERETIDE [Concomitant]
  3. NASONEX [Concomitant]
  4. AERIUS [Concomitant]

REACTIONS (1)
  - URTICARIA [None]
